FAERS Safety Report 19736546 (Version 2)
Quarter: 2021Q3

REPORT INFORMATION
  Report Type: Spontaneous
  Country: US (occurrence: US)
  Receive Date: 20210824
  Receipt Date: 20210827
  Transmission Date: 20211014
  Serious: No
  Sender: FDA-Public Use
  Company Number: US-BEH-2021135112

PATIENT
  Age: 59 Year
  Sex: Female

DRUGS (20)
  1. EVOXAC [Concomitant]
     Active Substance: CEVIMELINE HYDROCHLORIDE
  2. OMEPRAZOLE. [Concomitant]
     Active Substance: OMEPRAZOLE
  3. PRIVIGEN [Suspect]
     Active Substance: HUMAN IMMUNOGLOBULIN G
     Dosage: 20 GRAM, TOT
     Route: 042
     Dates: start: 20210813, end: 20210813
  4. HYDROCORTISON [HYDROCORTISONE] [Concomitant]
  5. ZOFRAN [Concomitant]
     Active Substance: ONDANSETRON HYDROCHLORIDE
  6. LYRICA [Concomitant]
     Active Substance: PREGABALIN
  7. PRIVIGEN [Suspect]
     Active Substance: HUMAN IMMUNOGLOBULIN G
     Indication: FATIGUE
     Dosage: 20 GRAM EVERY MONTH
     Route: 042
     Dates: start: 202005
  8. LEVOTHYROXIN [Concomitant]
     Active Substance: LEVOTHYROXINE
  9. PROMETHAZINE [Concomitant]
     Active Substance: PROMETHAZINE HYDROCHLORIDE
  10. TRAMADOL HCL [Concomitant]
     Active Substance: TRAMADOL HYDROCHLORIDE
  11. ABILIFY [Concomitant]
     Active Substance: ARIPIPRAZOLE
  12. BYSTOLIC [Concomitant]
     Active Substance: NEBIVOLOL HYDROCHLORIDE
  13. LUNESTA [Concomitant]
     Active Substance: ESZOPICLONE
  14. PHENERGAN [Concomitant]
     Active Substance: PROMETHAZINE HYDROCHLORIDE
     Indication: PREMEDICATION
  15. CYMBALTA [Concomitant]
     Active Substance: DULOXETINE HYDROCHLORIDE
  16. AZATHIOPRINE. [Concomitant]
     Active Substance: AZATHIOPRINE
  17. DICYCLOMINE?S [Concomitant]
     Active Substance: DICYCLOMINE HYDROCHLORIDE
  18. PROPRANOLOL HCL [Concomitant]
     Active Substance: PROPRANOLOL HYDROCHLORIDE
  19. HYDROCORTISON [HYDROCORTISONE] [Concomitant]
  20. TOPIRAMATE. [Concomitant]
     Active Substance: TOPIRAMATE

REACTIONS (7)
  - Localised oedema [Unknown]
  - Product use in unapproved indication [Unknown]
  - No adverse event [Unknown]
  - Ear infection [Recovered/Resolved]
  - Hunger [Unknown]
  - Headache [Not Recovered/Not Resolved]
  - Weight increased [Unknown]

NARRATIVE: CASE EVENT DATE: 20210813
